FAERS Safety Report 4656464-1 (Version None)
Quarter: 2005Q2

REPORT INFORMATION
  Report Type: 
  Country: None (occurrence: None)
  Receive Date: 20050504
  Receipt Date: 20050423
  Transmission Date: 20051028
  Serious: Yes (Life-Threatening, Hospitalization)
  Sender: FDA-Public Use
  Company Number: 05P-062-0298707-00

PATIENT
  Age: 51 Year
  Sex: Female
  Weight: 85 kg

DRUGS (4)
  1. AKINETON [Suspect]
     Indication: SUICIDE ATTEMPT
     Dosage: PER ORAL
     Route: 048
     Dates: start: 20050423, end: 20050423
  2. CARBAMAZEPINE [Suspect]
     Indication: SUICIDE ATTEMPT
     Dosage: PER ORAL
     Route: 048
     Dates: start: 20050423, end: 20050423
  3. BENPERIDOL [Suspect]
     Indication: SUICIDE ATTEMPT
     Dosage: PER ORAL
     Route: 048
     Dates: start: 20050423, end: 20050423
  4. TRUXAL DRAGEES [Suspect]
     Indication: SUICIDE ATTEMPT
     Dosage: 15 MG, PER ORAL
     Route: 048
     Dates: start: 20050423, end: 20050423

REACTIONS (5)
  - COMA [None]
  - OVERDOSE [None]
  - RESPIRATORY DEPRESSION [None]
  - SUICIDE ATTEMPT [None]
  - VOMITING [None]
